FAERS Safety Report 4546759-4 (Version None)
Quarter: 2005Q1

REPORT INFORMATION
  Report Type: 
  Country: None (occurrence: None)
  Receive Date: 20050106
  Receipt Date: 20041229
  Transmission Date: 20050727
  Serious: Yes (Hospitalization)
  Sender: FDA-Public Use
  Company Number: US-ABBOTT-04P-163-0284902-00

PATIENT
  Sex: Female
  Weight: 61.29 kg

DRUGS (1)
  1. BIAXIN XL [Suspect]
     Indication: SINUSITIS
     Route: 048
     Dates: start: 20020301, end: 20020301

REACTIONS (6)
  - ANAEMIA [None]
  - ASTHENIA [None]
  - CLOSTRIDIUM COLITIS [None]
  - DEHYDRATION [None]
  - RECTAL HAEMORRHAGE [None]
  - WEIGHT DECREASED [None]
